FAERS Safety Report 8450829 (Version 6)
Quarter: 2012Q4

REPORT INFORMATION
  Report Type: Report from Study
  Country: DE (occurrence: DE)
  Receive Date: 20120309
  Receipt Date: 20121226
  Transmission Date: 20130627
  Serious: Yes (Other)
  Sender: FDA-Public Use
  Company Number: DE-UCBSA-052496

PATIENT
  Age: 39 Year
  Sex: Female
  Weight: 71 kg

DRUGS (12)
  1. CIMZIA [Suspect]
     Indication: RHEUMATOID ARTHRITIS
     Route: 058
     Dates: start: 20110919, end: 201202
  2. PREDNISOLON [Concomitant]
     Indication: RHEUMATOID ARTHRITIS
     Dosage: 5-20 MG
     Dates: start: 200506
  3. OMEPRAZOL [Concomitant]
     Indication: PROPHYLAXIS
     Dates: start: 2008
  4. LODOTRA [Concomitant]
     Indication: RHEUMATOID ARTHRITIS
     Dates: start: 201112
  5. IBUPROFEN [Concomitant]
     Indication: RHEUMATOID ARTHRITIS
     Dates: start: 200506
  6. SEVREDOL [Concomitant]
     Indication: PAIN
     Dates: start: 201008
  7. DIAZEPAM [Concomitant]
     Indication: INSOMNIA
     Dates: start: 201008
  8. OTRIVEN [Concomitant]
     Indication: RHINITIS
     Dosage: UNSPECIFIED DOSE AS NEEDED
     Dates: start: 2007
  9. METOCLOPRAMID [Concomitant]
     Indication: PROPHYLAXIS OF NAUSEA AND VOMITING
     Dates: start: 201011
  10. SUMATRIPTAN [Concomitant]
     Indication: MIGRAINE
     Dosage: AS NECESSARY
     Dates: start: 201011
  11. MUCOSOLVAN [Concomitant]
     Indication: INFLUENZA
     Dates: start: 20111111, end: 20111206
  12. CAPVAL [Concomitant]
     Indication: INFLUENZA
     Dosage: DRAGEES, ONCE DAILY
     Dates: start: 20111111, end: 20111206

REACTIONS (2)
  - Abortion spontaneous [Unknown]
  - Pregnancy [Recovered/Resolved]
